FAERS Safety Report 18130509 (Version 1)
Quarter: 2020Q3

REPORT INFORMATION
  Report Type: Spontaneous
  Country: US (occurrence: US)
  Receive Date: 20200810
  Receipt Date: 20200810
  Transmission Date: 20201103
  Serious: Yes (Other)
  Sender: FDA-Public Use
  Company Number: US-PFIZER INC-2020298523

PATIENT
  Age: 63 Year
  Sex: Male
  Weight: 109.77 kg

DRUGS (2)
  1. HYDROCORTISONE. [Suspect]
     Active Substance: HYDROCORTISONE
     Dosage: UNK
  2. CORTEF [Suspect]
     Active Substance: HYDROCORTISONE
     Indication: ADRENAL INSUFFICIENCY
     Dosage: 30 MG, DAILY [5 MG. 3 IN THE MORNING AND 3 AT NIGHT BY MOUTH]
     Route: 048
     Dates: start: 2011

REACTIONS (2)
  - Diabetes mellitus [Unknown]
  - Influenza like illness [Unknown]
